FAERS Safety Report 10611993 (Version 1)
Quarter: 2014Q4

REPORT INFORMATION
  Report Type: Other
  Country: DE (occurrence: DE)
  Receive Date: 20141126
  Receipt Date: 20141126
  Transmission Date: 20150529
  Serious: Yes (Hospitalization)
  Sender: FDA-Public Use
  Company Number: DE-SPECTRUM PHARMACEUTICALS, INC.-14-M-DE-00344

PATIENT
  Sex: Male

DRUGS (16)
  1. VINCRISTINE SULFATE LIPOSOME [Suspect]
     Active Substance: VINCRISTINE SULFATE
     Indication: NON-HODGKIN^S LYMPHOMA
     Dosage: 4.2 MG, EVERY 2 WEEKS
     Route: 042
     Dates: start: 20140924
  2. CYCLOPHOSPHAMIDE. [Suspect]
     Active Substance: CYCLOPHOSPHAMIDE
     Indication: NON-HODGKIN^S LYMPHOMA
     Dosage: 1559 MG, EVERY 2 WEEKS
     Route: 042
     Dates: start: 20140924
  3. PEGFILGRASTIM [Concomitant]
     Active Substance: PEGFILGRASTIM
     Indication: NON-HODGKIN^S LYMPHOMA
     Dosage: 6 MG, DAY 4 OF EVERY CYCLE
     Route: 058
     Dates: start: 20141019
  4. PREDNISOLONE. [Concomitant]
     Active Substance: PREDNISOLONE
     Indication: NON-HODGKIN^S LYMPHOMA
     Dosage: 100 MG, DAILY, AS PLANNED
     Route: 048
     Dates: start: 20140917
  5. LANTUS [Concomitant]
     Active Substance: INSULIN GLARGINE
     Indication: DIABETES MELLITUS
     Dosage: UNK
     Dates: start: 201409
  6. BELOC ZOK [Concomitant]
     Active Substance: METOPROLOL SUCCINATE
     Indication: HYPERTENSION
     Dosage: 1 TABLET, TWICE A DAY
     Route: 048
     Dates: start: 201409
  7. AMPHO MORONAL [Concomitant]
     Indication: PROPHYLAXIS
     Dosage: UNK, START D7
     Route: 048
     Dates: start: 20140930
  8. RITUXIMAB [Concomitant]
     Active Substance: RITUXIMAB
     Indication: NON-HODGKIN^S LYMPHOMA
     Dosage: 770 MG, EVERY 2 WEEKS
     Route: 042
     Dates: start: 20140923
  9. ZOLPIDEM [Concomitant]
     Active Substance: ZOLPIDEM\ZOLPIDEM TARTRATE
     Indication: SLEEP DISORDER
     Dosage: 10 MG, QD
     Route: 048
     Dates: start: 20141105
  10. CIPROFLOXACIN. [Concomitant]
     Active Substance: CIPROFLOXACIN
     Indication: PROPHYLAXIS
     Dosage: 1000 MG, START D6
     Route: 048
     Dates: start: 20140929
  11. ACIC                               /00587301/ [Concomitant]
     Indication: PROPHYLAXIS
     Dosage: 1600 MG, QD
     Route: 048
     Dates: start: 20140923
  12. CLEXANE [Concomitant]
     Active Substance: ENOXAPARIN SODIUM
     Indication: PROPHYLAXIS
     Dosage: 0.4 ML, QD
     Route: 058
     Dates: start: 20141105
  13. PANTOZOL                           /01263202/ [Concomitant]
     Indication: PROPHYLAXIS
     Dosage: 40 MG, UNK
     Route: 048
     Dates: start: 201409
  14. DOXORUBICIN [Suspect]
     Active Substance: DOXORUBICIN
     Indication: NON-HODGKIN^S LYMPHOMA
     Dosage: 104 MG, EVERY 2 WEEKS
     Dates: start: 20140924
  15. COTRIM FORTE EU RHO [Concomitant]
     Indication: PROPHYLAXIS
     Dosage: 1920 MG, SAT AND SUN
     Route: 048
     Dates: start: 20140927
  16. DEKRISTOL [Concomitant]
     Active Substance: CHOLECALCIFEROL
     Indication: PROPHYLAXIS
     Dosage: 20000 IU, ONCE A WEEK
     Route: 048
     Dates: start: 201409

REACTIONS (9)
  - Constipation [None]
  - Electrocardiogram abnormal [None]
  - Decreased appetite [None]
  - Abdominal pain [None]
  - Gastrointestinal disorder [None]
  - Weight decreased [None]
  - General physical health deterioration [Recovered/Resolved]
  - Dizziness [None]
  - Dehydration [None]

NARRATIVE: CASE EVENT DATE: 20141105
